FAERS Safety Report 9240543 (Version 2)
Quarter: 2013Q2

REPORT INFORMATION
  Report Type: Spontaneous
  Country: US (occurrence: None)
  Receive Date: 20130415
  Receipt Date: 20130425
  Transmission Date: 20140414
  Serious: Yes (Hospitalization)
  Sender: FDA-Public Use
  Company Number: 2013PROUSA02703

PATIENT
  Age: 58 Year
  Sex: Male
  Weight: 89.3 kg

DRUGS (8)
  1. PROVENGE [Suspect]
     Indication: PROSTATE CANCER METASTATIC
     Dosage: 250ML, SINGLE, INTRAVENOUS
     Route: 042
     Dates: start: 20130314, end: 20130314
  2. PEPCID (FAMOTIDINE) [Concomitant]
  3. TYLENOL (PARACETAMOL) [Concomitant]
  4. BENADRYL (DIPHENHYDRAMINE HYDROCHLORIDE) [Concomitant]
  5. LISINOPRIL (LISINOPRIL) [Concomitant]
  6. NORVASC (AMLODIPINE BESILATE) [Concomitant]
  7. MEGESTROL (MEGESTROL ACETATE) [Concomitant]
  8. MULTIVITAMIN (VITAMINS NOS) [Concomitant]

REACTIONS (4)
  - Deep vein thrombosis [None]
  - Headache [None]
  - Hypoaesthesia [None]
  - Feeling cold [None]
